FAERS Safety Report 22110568 (Version 1)
Quarter: 2023Q1

REPORT INFORMATION
  Report Type: Spontaneous
  Country: US (occurrence: None)
  Receive Date: 20230317
  Receipt Date: 20230317
  Transmission Date: 20230417
  Serious: Yes (Other)
  Sender: FDA-Public Use
  Company Number: 2023A059909

PATIENT

DRUGS (2)
  1. CALQUENCE [Suspect]
     Active Substance: ACALABRUTINIB
     Indication: Chronic lymphocytic leukaemia
     Route: 048
  2. CALQUENCE [Suspect]
     Active Substance: ACALABRUTINIB
     Indication: Chronic lymphocytic leukaemia
     Route: 048
     Dates: end: 202302

REACTIONS (14)
  - Lymphadenopathy [Unknown]
  - Breast cancer [Unknown]
  - Back pain [Recovered/Resolved]
  - White blood cell count increased [Unknown]
  - Haematocrit abnormal [Unknown]
  - Laboratory test abnormal [Unknown]
  - Malaise [Unknown]
  - Fatigue [Unknown]
  - Chromaturia [Recovering/Resolving]
  - Haemoglobin abnormal [Unknown]
  - Red blood cell count abnormal [Unknown]
  - Nausea [Unknown]
  - Dizziness [Unknown]
  - Product availability issue [Unknown]
